FAERS Safety Report 6553559-2 (Version None)
Quarter: 2010Q1

REPORT INFORMATION
  Report Type: 
  Country: None (occurrence: None)
  Receive Date: 20100127
  Receipt Date: 20100119
  Transmission Date: 20100710
  Serious: Yes (Other)
  Sender: FDA-Public Use
  Company Number: US-ASTRAZENECA-2010SE02395

PATIENT
  Age: 78 Year
  Sex: Female

DRUGS (3)
  1. CRESTOR [Suspect]
     Route: 048
     Dates: end: 20091201
  2. RANEXA [Suspect]
     Indication: ANGINA PECTORIS
     Dates: start: 20090901, end: 20091201
  3. PRAVASTATIN [Suspect]
     Dates: end: 20091201

REACTIONS (2)
  - DRUG ADMINISTRATION ERROR [None]
  - RHABDOMYOLYSIS [None]
